FAERS Safety Report 8959615 (Version 5)
Quarter: 2013Q1

REPORT INFORMATION
  Report Type: Spontaneous
  Country: IT (occurrence: IT)
  Receive Date: 20121212
  Receipt Date: 20130222
  Transmission Date: 20140127
  Serious: Yes (Hospitalization, Other)
  Sender: FDA-Public Use
  Company Number: IT-PFIZER INC-2012312423

PATIENT
  Age: 32 Year
  Sex: Female

DRUGS (4)
  1. LAMOTRIGINE [Suspect]
     Indication: BIPOLAR II DISORDER
     Dosage: 300 MG, TOTAL
     Route: 048
     Dates: start: 20121128, end: 20121128
  2. ALPRAZOLAM [Suspect]
     Indication: BIPOLAR II DISORDER
     Dosage: 1 G, TOTAL
     Route: 048
     Dates: start: 20121128, end: 20121128
  3. CHLORPROMAZINE HYDROCHLORIDE [Suspect]
     Indication: BIPOLAR II DISORDER
     Dosage: 150 MG, TOTAL
     Route: 048
     Dates: start: 20121128, end: 20121128
  4. BUPROPION HYDROCHLORIDE [Suspect]
     Indication: BIPOLAR II DISORDER
     Dosage: 450 MG, TOTAL
     Route: 048
     Dates: start: 20121128, end: 20121128

REACTIONS (5)
  - Psychomotor skills impaired [Recovered/Resolved]
  - Drug abuse [Unknown]
  - Psychiatric symptom [Unknown]
  - Feelings of worthlessness [Unknown]
  - Feeling of despair [Unknown]
